FAERS Safety Report 4696987-2 (Version None)
Quarter: 2005Q2

REPORT INFORMATION
  Report Type: 
  Country: None (occurrence: None)
  Receive Date: 20050620
  Receipt Date: 20050304
  Transmission Date: 20051028
  Serious: No
  Sender: FDA-Public Use
  Company Number: US-YAMANOUCHI-YPA20050103

PATIENT
  Age: 57 Year
  Sex: Female
  Weight: 94.3482 kg

DRUGS (5)
  1. VESICARE [Suspect]
     Indication: URGE INCONTINENCE
     Dosage: 5 MG DAILY PO
     Route: 048
     Dates: start: 20050303
  2. ASPIRIN [Concomitant]
  3. VITAMINS NOS [Concomitant]
  4. PEPCID [Concomitant]
  5. DARVON [Concomitant]

REACTIONS (5)
  - ASTHENIA [None]
  - DISTURBANCE IN ATTENTION [None]
  - DIZZINESS [None]
  - FATIGUE [None]
  - FEELING ABNORMAL [None]
